FAERS Safety Report 11856165 (Version 1)
Quarter: 2015Q4

REPORT INFORMATION
  Report Type: Report from Study
  Country: US (occurrence: US)
  Receive Date: 20151221
  Receipt Date: 20151221
  Transmission Date: 20160305
  Serious: Yes (Other)
  Sender: FDA-Public Use
  Company Number: US-BIOGEN-2015BI148173

PATIENT
  Age: 37 Year
  Sex: Female
  Weight: 106.69 kg

DRUGS (6)
  1. LAMOTRIGINE. [Concomitant]
     Active Substance: LAMOTRIGINE
     Indication: PRODUCT USED FOR UNKNOWN INDICATION
     Route: 048
     Dates: start: 20151027
  2. TOPAMAX [Concomitant]
     Active Substance: TOPIRAMATE
     Route: 048
  3. BENADRYL [Concomitant]
     Active Substance: DIPHENHYDRAMINE HYDROCHLORIDE
     Indication: PREMEDICATION
  4. TYSABRI [Suspect]
     Active Substance: NATALIZUMAB
     Indication: MULTIPLE SCLEROSIS
     Route: 042
     Dates: start: 20150206
  5. TOPAMAX [Concomitant]
     Active Substance: TOPIRAMATE
     Indication: EPILEPSY
     Route: 048
     Dates: start: 20150720
  6. KETOROLAC TROMETHAMINE. [Concomitant]
     Active Substance: KETOROLAC TROMETHAMINE
     Indication: PAIN
     Route: 048
     Dates: start: 20140615

REACTIONS (9)
  - Herpes zoster [Recovered/Resolved]
  - Dizziness [Recovered/Resolved]
  - Seizure [Unknown]
  - Fatigue [Recovered/Resolved]
  - Depressed level of consciousness [Recovered/Resolved]
  - Chest pain [Recovered/Resolved]
  - Panic attack [Recovered/Resolved]
  - Vertigo [Recovered/Resolved]
  - Disorientation [Recovered/Resolved]

NARRATIVE: CASE EVENT DATE: 20150206
